FAERS Safety Report 5835623-6 (Version None)
Quarter: 2008Q3

REPORT INFORMATION
  Report Type: 
  Country: None (occurrence: None)
  Receive Date: 20080806
  Receipt Date: 20080804
  Transmission Date: 20090109
  Serious: Yes (Death, Hospitalization)
  Sender: FDA-Public Use
  Company Number: PHHO2001CA05248

PATIENT
  Sex: Male
  Weight: 81 kg

DRUGS (6)
  1. RAD 666 RAD+ [Suspect]
     Indication: HEART TRANSPLANT
     Dosage: 1.5 MG, BID
     Route: 048
     Dates: start: 20000203, end: 20010621
  2. NEORAL [Suspect]
     Indication: HEART TRANSPLANT
  3. PREDNISONE TAB [Suspect]
     Indication: HEART TRANSPLANT
  4. LASIX [Concomitant]
     Indication: OEDEMA
  5. CARDIZEM [Concomitant]
     Indication: PROPHYLAXIS
  6. FERROUS SULFATE TAB [Concomitant]
     Indication: ANAEMIA

REACTIONS (19)
  - BLOOD CULTURE POSITIVE [None]
  - BRADYCARDIA [None]
  - CARDIAC ARREST [None]
  - CARDIAC DISORDER [None]
  - COAGULOPATHY [None]
  - COUGH [None]
  - DYSPNOEA [None]
  - HYPERKALAEMIA [None]
  - HYPOTENSION [None]
  - OROPHARYNGEAL PAIN [None]
  - OXYGEN SATURATION DECREASED [None]
  - PNEUMOCYSTIS JIROVECI PNEUMONIA [None]
  - PYREXIA [None]
  - RENAL FAILURE ACUTE [None]
  - SEPSIS [None]
  - SEPTIC SHOCK [None]
  - STAPHYLOCOCCAL SEPSIS [None]
  - VENTRICULAR TACHYCARDIA [None]
  - WHITE BLOOD CELL COUNT INCREASED [None]
